FAERS Safety Report 17664825 (Version 1)
Quarter: 2020Q2

REPORT INFORMATION
  Report Type: Spontaneous
  Country: US (occurrence: US)
  Receive Date: 20200414
  Receipt Date: 20200414
  Transmission Date: 20200713
  Serious: No
  Sender: FDA-Public Use
  Company Number: US-PFIZER INC-2020147941

PATIENT
  Age: 69 Year
  Sex: Female

DRUGS (1)
  1. DOFETILIDE. [Suspect]
     Active Substance: DOFETILIDE
     Dosage: 500 UG, 2X/DAY

REACTIONS (2)
  - Palpitations [Unknown]
  - Swelling [Unknown]
